FAERS Safety Report 17882401 (Version 1)
Quarter: 2020Q2

REPORT INFORMATION
  Report Type: Spontaneous
  Country: AR (occurrence: AR)
  Receive Date: 20200610
  Receipt Date: 20200610
  Transmission Date: 20200714
  Serious: Yes (Other)
  Sender: FDA-Public Use
  Company Number: AR-AMGEN-ARGSP2020089762

PATIENT
  Age: 77 Year
  Sex: Female

DRUGS (1)
  1. ENBREL [Suspect]
     Active Substance: ETANERCEPT
     Indication: RHEUMATOID ARTHRITIS
     Dosage: 50 MG, WEEKLY (1 DOSE PER WEEK)
     Route: 065
     Dates: start: 20191217

REACTIONS (8)
  - Osteoporosis [Unknown]
  - Insomnia [Unknown]
  - Spinal deformity [Unknown]
  - Pain [Unknown]
  - Deafness [Unknown]
  - Rheumatic fever [Unknown]
  - Mobility decreased [Unknown]
  - Dislocation of vertebra [Unknown]
